FAERS Safety Report 4652125-3 (Version None)
Quarter: 2005Q2

REPORT INFORMATION
  Report Type: 
  Country: None (occurrence: None)
  Receive Date: 20050502
  Receipt Date: 20050418
  Transmission Date: 20051028
  Serious: Yes (Hospitalization, Other)
  Sender: FDA-Public Use
  Company Number: 2005025385

PATIENT
  Age: 69 Year
  Sex: Female
  Weight: 77.5651 kg

DRUGS (9)
  1. BEXTRA [Suspect]
     Indication: ARTHRITIS
     Dosage: 10 MG (10 MG, 1 D)
     Dates: start: 20041001
  2. GEZOR (HYDROCHLOROTHIAZIDE, QUINAPRIL HYDROCHLORIDE) [Concomitant]
  3. ATORVASTATIN CALCIUM [Concomitant]
  4. CETIRIZINE/PSEUDOEPHEDRINE (CETIRIZINE, PSEUDOEPHEDRINE) [Concomitant]
  5. METAXALONE [Concomitant]
  6. ALL OTHER THERAPEUTIC PRODUCTS (ALL OTHER THERAPEUTIC PRODUCTS) [Concomitant]
  7. LEVOTHYROXINE SODIUM [Concomitant]
  8. CONJUGATED ESTROGENS [Concomitant]
  9. VICODIN [Concomitant]

REACTIONS (6)
  - ANAEMIA [None]
  - FEELING ABNORMAL [None]
  - MUSCLE SPASMS [None]
  - NAUSEA [None]
  - ULCER HAEMORRHAGE [None]
  - WEIGHT DECREASED [None]
